FAERS Safety Report 5796819-5 (Version None)
Quarter: 2008Q3

REPORT INFORMATION
  Report Type: 
  Country: None (occurrence: None)
  Receive Date: 20080701
  Receipt Date: 20080624
  Transmission Date: 20090109
  Serious: Yes (Other)
  Sender: FDA-Public Use
  Company Number: CA-ASTRAZENECA-2008UW10731

PATIENT
  Age: 24602 Day
  Sex: Male
  Weight: 77 kg

DRUGS (9)
  1. CRESTOR [Suspect]
     Route: 048
     Dates: end: 20080401
  2. DIABETA [Concomitant]
  3. ACTOS [Concomitant]
     Indication: DIABETES MELLITUS
     Route: 048
  4. METFORMIN HCL [Concomitant]
     Indication: DIABETES MELLITUS
  5. ALTACE [Concomitant]
     Indication: HYPERTENSION
  6. ALTACE [Concomitant]
  7. FUROSEMIDE [Concomitant]
  8. ASPIRIN [Concomitant]
  9. METOPROLOL SUCCINATE [Concomitant]

REACTIONS (3)
  - FATIGUE [None]
  - UBIQUINONE DECREASED [None]
  - WEIGHT DECREASED [None]
